FAERS Safety Report 20850735 (Version 1)
Quarter: 2022Q2

REPORT INFORMATION
  Report Type: Spontaneous
  Country: GB (occurrence: GB)
  Receive Date: 20220519
  Receipt Date: 20220519
  Transmission Date: 20220721
  Serious: Yes (Other)
  Sender: FDA-Public Use
  Company Number: GB-MYLANLABS-2022M1036246

PATIENT
  Age: 34 Year
  Sex: Male

DRUGS (1)
  1. CLOZARIL [Suspect]
     Active Substance: CLOZAPINE
     Indication: Schizophrenia
     Dosage: UNK
     Route: 048
     Dates: start: 20131223

REACTIONS (6)
  - Schizophrenia [Unknown]
  - Product dose omission issue [Unknown]
  - Treatment noncompliance [Unknown]
  - Red blood cell count decreased [Unknown]
  - Mean cell haemoglobin increased [Unknown]
  - Alanine aminotransferase increased [Unknown]

NARRATIVE: CASE EVENT DATE: 20220511
